FAERS Safety Report 7238237-9 (Version None)
Quarter: 2011Q1

REPORT INFORMATION
  Report Type: 
  Country: None (occurrence: None)
  Receive Date: 20110119
  Receipt Date: 20110119
  Transmission Date: 20110831
  Serious: Yes (Hospitalization)
  Sender: FDA-Public Use
  Company Number: None

PATIENT
  Age: 58 Year
  Sex: Male
  Weight: 61.2356 kg

DRUGS (6)
  1. TRIAD STERILE ALCOHOL PREP PADS TRIAD [Suspect]
     Indication: INJECTION
     Dosage: 2 PADS EVERY OTHER DAY WIPE SKIN PRIOR/AFTER
     Dates: start: 20100801, end: 20110113
  2. LISINOPRIL [Concomitant]
  3. BETA SERAN [Concomitant]
  4. AMPRYRA [Concomitant]
  5. GABAPENTIN [Concomitant]
  6. TAMSLOSIN [Concomitant]

REACTIONS (2)
  - ABDOMINAL ABSCESS [None]
  - INJECTION SITE PAIN [None]
